FAERS Safety Report 7888938-4 (Version None)
Quarter: 2011Q4

REPORT INFORMATION
  Report Type: 
  Country: None (occurrence: None)
  Receive Date: 20111103
  Receipt Date: 20111025
  Transmission Date: 20120403
  Serious: Yes (Hospitalization, Other)
  Sender: FDA-Public Use
  Company Number: US-B.I. PHARMACEUTICALS,INC./RIDGEFIELD-2011-BP-25192PF

PATIENT
  Sex: Female
  Weight: 51.7 kg

DRUGS (27)
  1. GLIPIZIDE [Concomitant]
  2. RETINOL [Concomitant]
  3. LASIX [Concomitant]
     Dosage: 80 MG
  4. NICOTINAMIDE [Concomitant]
  5. LOSARTAN POTASSIUM [Concomitant]
     Indication: HYPERTENSION
     Dosage: 100 MG
  6. ACTONEL [Concomitant]
     Indication: ARTHRITIS
     Dosage: 150 MG ONCE A MONTH
  7. TEMAZEPAM [Concomitant]
     Indication: SLEEP DISORDER
     Dosage: 50 MG
  8. LOPID [Concomitant]
  9. COSAMIN DS [Concomitant]
  10. FISH OIL (FISH OIL) [Concomitant]
  11. ERGOCALCIFEROL [Concomitant]
  12. PANTHENOL [Concomitant]
  13. PREDNISONE TAB [Concomitant]
     Dosage: 20 MG
  14. BIOTIN (BIOTIN) [Concomitant]
     Dosage: 500 MG
  15. FOLIC ACID [Concomitant]
  16. OMEPRAZOLE [Concomitant]
     Dosage: 40 MG
  17. CARDIZEM [Concomitant]
  18. NORVASC (AMLODPINE) [Concomitant]
  19. MULTI-VITAMINS [Concomitant]
  20. RIBOFLAVIN [Concomitant]
  21. THIAMINE HYDROCHLORIDE [Concomitant]
  22. SPIRIVA [Suspect]
     Indication: LUNG DISORDER
     Dosage: 18 MCG
     Dates: start: 20060101
  23. LIPITOR [Suspect]
     Indication: BLOOD CHOLESTEROL INCREASED
     Dosage: 40 MG
     Route: 048
     Dates: start: 20050101
  24. SPIRONOLACTONE [Concomitant]
     Dosage: 12.5 MG
  25. ASPIRIN [Concomitant]
     Dosage: 81 MG
  26. CALCIUM CARBONATE [Concomitant]
     Dosage: ONCE A DAY
  27. ASCORBIC ACID [Concomitant]

REACTIONS (7)
  - CHRONIC OBSTRUCTIVE PULMONARY DISEASE [None]
  - PNEUMONIA [None]
  - PULMONARY CONGESTION [None]
  - WEIGHT DECREASED [None]
  - ATRIAL FIBRILLATION [None]
  - GAIT DISTURBANCE [None]
  - BRONCHITIS [None]
